FAERS Safety Report 4511094-7 (Version None)
Quarter: 2004Q4

REPORT INFORMATION
  Report Type: 
  Country: None (occurrence: None)
  Receive Date: 20041015
  Receipt Date: 20040107
  Transmission Date: 20050328
  Serious: Yes (Other)
  Sender: FDA-Public Use
  Company Number: 2004001304

PATIENT
  Age: 50 Year
  Sex: Male
  Weight: 117.9352 kg

DRUGS (7)
  1. NEURONTIN [Suspect]
     Indication: PAIN
     Dosage: 2400 MG (TID), ORAL
     Route: 048
     Dates: start: 20030101
  2. ZOLOFT [Concomitant]
  3. CLONAZEPAM [Concomitant]
  4. BUPROPION HYDROCHLORIDE [Concomitant]
  5. THYROID TAB [Concomitant]
  6. METHADONE (METHADONE) [Concomitant]
  7. OXYCODONE (OXYCODONE) [Concomitant]

REACTIONS (5)
  - ACCIDENTAL OVERDOSE [None]
  - CHEST PAIN [None]
  - EMOTIONAL DISORDER [None]
  - SUICIDAL IDEATION [None]
  - THINKING ABNORMAL [None]
